FAERS Safety Report 17289338 (Version 1)
Quarter: 2020Q1

REPORT INFORMATION
  Report Type: Report from Study
  Country: JP (occurrence: JP)
  Receive Date: 20200120
  Receipt Date: 20200120
  Transmission Date: 20200409
  Serious: Yes (Hospitalization)
  Sender: FDA-Public Use
  Company Number: JP-PFIZER INC-2017525319

PATIENT
  Age: 74 Year
  Sex: Male
  Weight: 71.2 kg

DRUGS (14)
  1. PETROLATUM SALICYLATE [Concomitant]
     Dosage: UNK UNK, 1X/DAY
     Route: 062
     Dates: start: 20170502
  2. GENTACIN [Concomitant]
     Active Substance: GENTAMICIN SULFATE
     Dosage: UNK UNK, 1X/DAY
     Route: 062
     Dates: start: 20170410
  3. ALINAMIN F [Concomitant]
     Active Substance: FURSULTIAMINE HYDROCHLORIDE
     Indication: NEUROPATHY PERIPHERAL
     Dosage: 25 MG, 1X/DAY
     Route: 048
     Dates: start: 20140516
  4. NEUROTROPIN [Concomitant]
     Active Substance: NEUROTROPIN
     Dosage: 8 DF, 2X/DAY
     Route: 048
     Dates: start: 20170410
  5. ZEFNART [Concomitant]
     Dosage: UNK UNK, 1X/DAY
     Route: 062
     Dates: start: 20170410
  6. CYMBALTA [Concomitant]
     Active Substance: DULOXETINE HYDROCHLORIDE
     Indication: PAIN
     Dosage: 20 MG, 1X/DAY
     Route: 048
     Dates: start: 20140707
  7. JUVELA [Concomitant]
     Active Substance: .ALPHA.-TOCOPHEROL\RETINOL
     Dosage: 200 MG, 3X/DAY
     Route: 048
     Dates: start: 20160222
  8. FOLIAMIN [Concomitant]
     Active Substance: FOLIC ACID
     Dosage: 5 MG, 1X/DAY
     Route: 048
     Dates: start: 20150114
  9. CLENAFIN [Concomitant]
     Active Substance: EFINACONAZOLE
     Indication: NAIL DISORDER
     Dosage: UNK UNK, 1X/DAY
     Route: 062
     Dates: start: 20170410
  10. VYNDAQEL [Suspect]
     Active Substance: TAFAMIDIS MEGLUMINE
     Indication: HEREDITARY NEUROPATHIC AMYLOIDOSIS
     Dosage: 20 MG, 1X/DAY
     Route: 048
     Dates: start: 20141022
  11. FLIVAS [Concomitant]
     Active Substance: NAFTOPIDIL
     Indication: POLLAKIURIA
     Dosage: 75 MG, 1X/DAY
     Route: 048
     Dates: start: 20140509
  12. TOVIAZ [Concomitant]
     Active Substance: FESOTERODINE FUMARATE
     Indication: HYPERTONIC BLADDER
     Dosage: 4 MG, 1X/DAY
     Route: 048
     Dates: start: 20140509
  13. METHYCOBAL [Concomitant]
     Active Substance: METHYLCOBALAMIN
     Indication: NEUROPATHY PERIPHERAL
     Dosage: 500 UG, 3X/DAY
     Route: 048
     Dates: start: 20140415
  14. OLMETEC [Concomitant]
     Active Substance: OLMESARTAN MEDOXOMIL
     Indication: HYPERTENSION
     Dosage: 20 MG, 1X/DAY
     Route: 048
     Dates: start: 20140415, end: 20150401

REACTIONS (3)
  - Haematuria [Recovered/Resolved]
  - Urinary retention [Recovered/Resolved]
  - Haematuria [Recovered/Resolved]

NARRATIVE: CASE EVENT DATE: 20170517
